FAERS Safety Report 25047767 (Version 1)
Quarter: 2025Q1

REPORT INFORMATION
  Report Type: Spontaneous
  Country: JP (occurrence: JP)
  Receive Date: 20250306
  Receipt Date: 20250306
  Transmission Date: 20250409
  Serious: Yes (Hospitalization)
  Sender: MERCK SHARP & DOHME LLC
  Company Number: JP-009507513-2259905

PATIENT
  Age: 50 Year
  Sex: Female
  Weight: 51 kg

DRUGS (13)
  1. KEYTRUDA [Suspect]
     Active Substance: PEMBROLIZUMAB
     Indication: Uterine cancer
     Route: 041
     Dates: start: 20241119, end: 20241119
  2. LENVATINIB [Suspect]
     Active Substance: LENVATINIB
     Indication: Uterine cancer
     Route: 048
     Dates: start: 20241119, end: 20241202
  3. AMITIZA [Concomitant]
     Active Substance: LUBIPROSTONE
  4. MIROGABALIN BESYLATE [Concomitant]
     Active Substance: MIROGABALIN BESYLATE
  5. PRIMPERAN [Concomitant]
     Active Substance: METOCLOPRAMIDE HYDROCHLORIDE
  6. ACETAMINOPHEN\TRAMADOL HYDROCHLORIDE [Concomitant]
     Active Substance: ACETAMINOPHEN\TRAMADOL HYDROCHLORIDE
  7. AZOSEMIDE [Concomitant]
     Active Substance: AZOSEMIDE
  8. ROSUVASTATIN [Concomitant]
     Active Substance: ROSUVASTATIN
  9. SPIRONOLACTONE [Concomitant]
     Active Substance: SPIRONOLACTONE
  10. CARVEDILOL [Concomitant]
     Active Substance: CARVEDILOL
  11. ALLOPURINOL [Concomitant]
     Active Substance: ALLOPURINOL
  12. FLECAINIDE [Concomitant]
     Active Substance: FLECAINIDE
  13. CALONAL [Concomitant]
     Active Substance: ACETAMINOPHEN

REACTIONS (12)
  - Immune-mediated adverse reaction [Recovering/Resolving]
  - Chills [Unknown]
  - Rash [Unknown]
  - Drug eruption [Recovered/Resolved]
  - Infection [Unknown]
  - Malaise [Unknown]
  - Abdominal pain upper [Unknown]
  - White blood cell count decreased [Unknown]
  - Platelet count decreased [Unknown]
  - Oropharyngeal pain [Unknown]
  - Silent thyroiditis [Unknown]
  - Pyrexia [Unknown]

NARRATIVE: CASE EVENT DATE: 20241129
